FAERS Safety Report 10175999 (Version 1)
Quarter: 2014Q2

REPORT INFORMATION
  Report Type: Spontaneous
  Country: US (occurrence: US)
  Receive Date: 20140516
  Receipt Date: 20140516
  Transmission Date: 20141212
  Serious: No
  Sender: FDA-Public Use
  Company Number: US-BAYER-2014-065123

PATIENT
  Age: 73 Year
  Sex: Female

DRUGS (1)
  1. CIPRO [Suspect]

REACTIONS (2)
  - Drug hypersensitivity [Unknown]
  - Rash [Unknown]
